FAERS Safety Report 5157289-3 (Version None)
Quarter: 2006Q4

REPORT INFORMATION
  Report Type: 
  Country: None (occurrence: None)
  Receive Date: 20061127
  Receipt Date: 20061120
  Transmission Date: 20070319
  Serious: Yes (Other)
  Sender: FDA-Public Use
  Company Number: GB-BRISTOL-MYERS SQUIBB COMPANY-13584388

PATIENT
  Age: 38 Year
  Sex: Female
  Weight: 62 kg

DRUGS (2)
  1. KENALOG [Suspect]
     Indication: INFLAMMATION
     Route: 014
     Dates: start: 20061006, end: 20061006
  2. BUPIVACAINE [Concomitant]
     Indication: LOCAL ANAESTHESIA
     Dates: start: 20061006, end: 20061006

REACTIONS (6)
  - DYSPEPSIA [None]
  - ERYTHEMA [None]
  - FOOD CRAVING [None]
  - HOT FLUSH [None]
  - JOINT SWELLING [None]
  - PAIN IN EXTREMITY [None]
